FAERS Safety Report 4424332-6 (Version None)
Quarter: 2004Q3

REPORT INFORMATION
  Report Type: 
  Country: None (occurrence: None)
  Receive Date: 20040715
  Receipt Date: 20040331
  Transmission Date: 20050211
  Serious: Yes (Hospitalization)
  Sender: FDA-Public Use
  Company Number: 2004206619US

PATIENT
  Age: 62 Year
  Sex: Female

DRUGS (5)
  1. CELEBREX [Suspect]
     Indication: ARTHRITIS
     Dosage: 100 MG, BID,
     Dates: start: 20010101, end: 20020601
  2. CELEBREX [Suspect]
     Indication: ARTHRITIS
     Dosage: 100 MG, BID,
     Dates: start: 20040201
  3. SYNTHROID [Concomitant]
  4. MONOPRIL [Concomitant]
  5. LIPITOR [Concomitant]

REACTIONS (2)
  - DRUG EFFECT DECREASED [None]
  - PULMONARY THROMBOSIS [None]
